FAERS Safety Report 5110151-4 (Version None)
Quarter: 2006Q3

REPORT INFORMATION
  Report Type: 
  Country: None (occurrence: None)
  Receive Date: 20060918
  Receipt Date: 20060905
  Transmission Date: 20061208
  Serious: Yes (Other)
  Sender: FDA-Public Use
  Company Number: HQWYE608613SEP06

PATIENT
  Sex: Female

DRUGS (1)
  1. EFFEXOR [Suspect]
     Indication: DEPRESSION

REACTIONS (7)
  - CAESAREAN SECTION [None]
  - DRUG EXPOSURE BEFORE PREGNANCY [None]
  - PLACENTA PRAEVIA HAEMORRHAGE [None]
  - PREMATURE BABY [None]
  - PREMATURE LABOUR [None]
  - TWIN PREGNANCY [None]
  - VAGINAL HAEMORRHAGE [None]
